FAERS Safety Report 10927166 (Version 1)
Quarter: 2015Q1

REPORT INFORMATION
  Report Type: Spontaneous
  Country: US (occurrence: US)
  Receive Date: 20150318
  Receipt Date: 20150318
  Transmission Date: 20150721
  Serious: No
  Sender: FDA-Public Use
  Company Number: US-GLAXOSMITHKLINE-US2015GSK036001

PATIENT
  Sex: Female

DRUGS (13)
  1. OXYCODONE [Concomitant]
     Active Substance: OXYCODONE
  2. ALPRAZOLAM. [Concomitant]
     Active Substance: ALPRAZOLAM
  3. COLCHICINE. [Concomitant]
     Active Substance: COLCHICINE
  4. OMEPRAZOLE. [Concomitant]
     Active Substance: OMEPRAZOLE
  5. SIMVASTATIN. [Concomitant]
     Active Substance: SIMVASTATIN
  6. PANTOPRAZOLE [Concomitant]
     Active Substance: PANTOPRAZOLE SODIUM
  7. XARELTO [Concomitant]
     Active Substance: RIVAROXABAN
  8. CEPHALEXIN. [Concomitant]
     Active Substance: CEPHALEXIN
  9. POTASSIUM [Concomitant]
     Active Substance: POTASSIUM
  10. VOTRIENT [Suspect]
     Active Substance: PAZOPANIB HYDROCHLORIDE
     Indication: RENAL CANCER
     Dosage: 600 MG, QD
     Route: 048
     Dates: start: 20150114
  11. GLYBURIDE. [Concomitant]
     Active Substance: GLYBURIDE
  12. COLCRYS [Concomitant]
     Active Substance: COLCHICINE
  13. SERTRALINE [Concomitant]
     Active Substance: SERTRALINE HYDROCHLORIDE

REACTIONS (4)
  - Dehydration [Unknown]
  - Vision blurred [Unknown]
  - Muscle spasms [Unknown]
  - Tremor [Unknown]
